FAERS Safety Report 9855754 (Version 1)
Quarter: 2014Q1

REPORT INFORMATION
  Report Type: Report from Study
  Country: US (occurrence: US)
  Receive Date: 20140130
  Receipt Date: 20140130
  Transmission Date: 20141002
  Serious: Yes (Hospitalization, Other)
  Sender: FDA-Public Use
  Company Number: PHHY2014US010550

PATIENT
  Age: 63 Year
  Sex: Female
  Weight: 48.98 kg

DRUGS (12)
  1. XOLAIR [Suspect]
     Indication: ASTHMA
     Dosage: UNK EVERY 4 WEEKS
     Dates: start: 201203
  2. RECLAST [Suspect]
     Dosage: UNK
     Route: 042
  3. PROPYLTHIOURACIL [Concomitant]
     Dosage: 50 MG, BID
     Route: 048
  4. MUCINEX [Concomitant]
     Dosage: UNK UKN, BID
     Route: 048
  5. SINGULAIR [Concomitant]
     Dosage: UNK UKN, UNK
  6. ALLEGRA [Concomitant]
     Dosage: UNK UKN, UNK
  7. XYZAL [Concomitant]
     Indication: HYPERSENSITIVITY
     Dosage: UNK UKN, UNK
  8. CREON [Concomitant]
     Dosage: UNK UKN, UNK
  9. VITAMIN D3 [Concomitant]
     Dosage: UNK UKN, UNK
  10. MELATONIN [Concomitant]
     Dosage: UNK UKN, UNK
  11. ALIGN [Concomitant]
     Dosage: UNK UKN, UNK
  12. NASONEX [Concomitant]
     Dosage: UNK UKN, UNK

REACTIONS (6)
  - Abasia [Unknown]
  - Thrombosis [Unknown]
  - Chills [Unknown]
  - Chondrocalcinosis pyrophosphate [Unknown]
  - Influenza like illness [Unknown]
  - Blood immunoglobulin E increased [Unknown]
